FAERS Safety Report 9555232 (Version 1)
Quarter: 2013Q3

REPORT INFORMATION
  Report Type: Spontaneous
  Country: US (occurrence: None)
  Receive Date: 20130925
  Receipt Date: 20130925
  Transmission Date: 20140515
  Serious: Yes (Other)
  Sender: FDA-Public Use
  Company Number: None

PATIENT
  Age: 86 Year
  Sex: Male
  Weight: 73.48 kg

DRUGS (1)
  1. CIPRO [Suspect]
     Indication: CARBUNCLE
     Route: 048
     Dates: start: 20130810, end: 20130813

REACTIONS (2)
  - Tendonitis [None]
  - Myositis [None]
